FAERS Safety Report 6262206-9 (Version None)
Quarter: 2009Q3

REPORT INFORMATION
  Report Type: 
  Country: None (occurrence: None)
  Receive Date: 20090708
  Receipt Date: 20090708
  Transmission Date: 20100115
  Serious: Yes (Disabling)
  Sender: FDA-Public Use
  Company Number: None

PATIENT
  Sex: Female
  Weight: 77.1115 kg

DRUGS (1)
  1. ZICAM GEL SWABS ZICAM LLC [Suspect]
     Indication: NASOPHARYNGITIS
     Dosage: 1 GEL SWAB 1 EVERY 4 HRS NOSE
     Route: 045
     Dates: start: 20090223

REACTIONS (1)
  - PAROSMIA [None]
